FAERS Safety Report 15766459 (Version 11)
Quarter: 2019Q4

REPORT INFORMATION
  Report Type: Spontaneous
  Country: US (occurrence: US)
  Receive Date: 20181227
  Receipt Date: 20191212
  Transmission Date: 20200122
  Serious: Yes (Other)
  Sender: FDA-Public Use
  Company Number: US-PFIZER INC-2018531570

PATIENT
  Age: 60 Year
  Sex: Female

DRUGS (6)
  1. LYRICA [Suspect]
     Active Substance: PREGABALIN
     Dosage: 150 MG, UNK
  2. LYRICA [Suspect]
     Active Substance: PREGABALIN
     Dosage: 200 MG, UNK (200 MG, 3 TO 4 TIMES PER DAY)
  3. LYRICA [Suspect]
     Active Substance: PREGABALIN
     Dosage: 100 MG, 2X/DAY
     Route: 048
  4. LYRICA [Suspect]
     Active Substance: PREGABALIN
     Dosage: 200 MG, 3X/DAY (EVERY 8 HOURS)
     Route: 048
     Dates: start: 20190523, end: 2019
  5. LYRICA [Suspect]
     Active Substance: PREGABALIN
     Indication: DIABETIC NEUROPATHY
     Dosage: 100 MG, 3X/DAY
     Route: 048
     Dates: start: 20180222, end: 20180417
  6. LYRICA [Suspect]
     Active Substance: PREGABALIN
     Dosage: 150 MG, 3X/DAY (EVERY 8 HOURS)
     Route: 048
     Dates: start: 20191122

REACTIONS (7)
  - Off label use [Unknown]
  - Tremor [Not Recovered/Not Resolved]
  - Prescribed overdose [Unknown]
  - Neuropathy peripheral [Unknown]
  - Pain [Unknown]
  - Hypoaesthesia [Unknown]
  - Product use issue [Unknown]

NARRATIVE: CASE EVENT DATE: 201908
